FAERS Safety Report 9217925 (Version 1)
Quarter: 2013Q2

REPORT INFORMATION
  Report Type: Spontaneous
  Country: US (occurrence: US)
  Receive Date: 20130408
  Receipt Date: 20130408
  Transmission Date: 20140414
  Serious: Yes (Other)
  Sender: FDA-Public Use
  Company Number: US-ABBOTT-13P-163-1072174-00

PATIENT
  Age: 38 Year
  Sex: Female
  Weight: 81.72 kg

DRUGS (13)
  1. HUMIRA [Suspect]
     Indication: CROHN^S DISEASE
     Dates: start: 200707, end: 201303
  2. PERCOCET [Suspect]
     Indication: BACK PAIN
     Dosage: 10/325 MG
     Dates: start: 2013, end: 2013
  3. PERCOCET [Suspect]
     Indication: PAIN IN EXTREMITY
  4. AMLODIPINE [Concomitant]
     Indication: HYPERTENSION
  5. METOPROLOL [Concomitant]
     Indication: HYPERTENSION
  6. AMITRIPTYLINE [Concomitant]
     Indication: DEPRESSION
  7. OMEPRAZOLE [Concomitant]
     Indication: GASTROOESOPHAGEAL REFLUX DISEASE
  8. ROPINIROLE [Concomitant]
     Indication: RESTLESS LEGS SYNDROME
  9. LORAZEPAM [Concomitant]
     Indication: ANXIETY
  10. AMBIEN [Concomitant]
     Indication: INSOMNIA
  11. FLUTICASONE PROPIONATE [Concomitant]
     Indication: GASTROOESOPHAGEAL REFLUX DISEASE
  12. ALBUTEROL [Concomitant]
     Indication: CHRONIC OBSTRUCTIVE PULMONARY DISEASE
  13. FLOVENT [Concomitant]
     Indication: CHRONIC OBSTRUCTIVE PULMONARY DISEASE

REACTIONS (24)
  - Vision blurred [Not Recovered/Not Resolved]
  - Paraesthesia [Not Recovered/Not Resolved]
  - Hypoaesthesia [Not Recovered/Not Resolved]
  - Paraesthesia [Not Recovered/Not Resolved]
  - Hypoaesthesia [Not Recovered/Not Resolved]
  - Paraesthesia [Not Recovered/Not Resolved]
  - Back pain [Not Recovered/Not Resolved]
  - Pain in extremity [Not Recovered/Not Resolved]
  - Blindness unilateral [Not Recovered/Not Resolved]
  - Night sweats [Not Recovered/Not Resolved]
  - Fatigue [Not Recovered/Not Resolved]
  - Retinal pigment epitheliopathy [Not Recovered/Not Resolved]
  - Latent tuberculosis [Not Recovered/Not Resolved]
  - Cough [Not Recovered/Not Resolved]
  - Respiratory tract congestion [Unknown]
  - Dysphagia [Unknown]
  - Dyspnoea [Unknown]
  - Choking sensation [Unknown]
  - Asthenia [Not Recovered/Not Resolved]
  - Cold sweat [Not Recovered/Not Resolved]
  - Insomnia [Recovered/Resolved]
  - Nasopharyngitis [Recovered/Resolved]
  - Increased upper airway secretion [None]
  - Hypersomnia [None]
